FAERS Safety Report 6591139-3 (Version None)
Quarter: 2010Q1

REPORT INFORMATION
  Report Type: 
  Country: None (occurrence: None)
  Receive Date: 20100219
  Receipt Date: 20090602
  Transmission Date: 20100710
  Serious: No
  Sender: FDA-Public Use
  Company Number: US-BRISTOL-MYERS SQUIBB COMPANY-14645956

PATIENT
  Age: 31 Year
  Sex: Female
  Weight: 84 kg

DRUGS (3)
  1. KENALOG-10 [Suspect]
     Indication: BACK DISORDER
     Dosage: TAKEN 3 MONTHS AGO
  2. MOTRIN [Concomitant]
  3. TRAMADOL [Concomitant]

REACTIONS (6)
  - ACNE [None]
  - HAIR GROWTH ABNORMAL [None]
  - HEADACHE [None]
  - HYPERTENSION [None]
  - PERIPHERAL VASCULAR DISORDER [None]
  - WEIGHT INCREASED [None]
